FAERS Safety Report 8410379 (Version 2)
Quarter: 2013Q2

REPORT INFORMATION
  Report Type: Spontaneous
  Country: US (occurrence: None)
  Receive Date: 20111227
  Receipt Date: 20120426
  Transmission Date: 20140414
  Serious: No
  Sender: FDA-Public Use
  Company Number: PHEH2011US009028

PATIENT
  Sex: Female
  Weight: 115.6 kg

DRUGS (9)
  1. GILENYA [Suspect]
     Indication: MULTIPLE SCLEROSIS
     Dosage: 0.5 MG, DAILY, ORAL
     Route: 048
     Dates: start: 20110926
  2. BACLOFEN (BACLOFEN) [Concomitant]
  3. GABAPENTIN (GABAPENTIN) [Concomitant]
  4. OXYBUTYNIN (OXYBUTYNIN) [Concomitant]
  5. SYNTHROID (LEVOTHYROXINE SODIUM) [Concomitant]
  6. VITAMIN B12 (CYCANOCOBALMIN [Concomitant]
  7. VITAMIN D (ERGOCALCIFEROL) [Concomitant]
  8. CELEXA (CITALOPRAM HYDROBROMIDE) [Concomitant]
  9. CALTRATE (CALCIUM CARBONATE) [Concomitant]

REACTIONS (8)
  - FALL [None]
  - INFECTION [None]
  - Cellulitis [None]
  - Neutrophil count increased [None]
  - Contusion [None]
  - Impaired healing [None]
  - Lymphocyte count decreased [None]
  - Alopecia [None]
